FAERS Safety Report 8454179-5 (Version None)
Quarter: 2012Q2

REPORT INFORMATION
  Report Type: 
  Country: None (occurrence: None)
  Receive Date: 20120620
  Receipt Date: 20120613
  Transmission Date: 20120825
  Serious: Yes (Hospitalization)
  Sender: FDA-Public Use
  Company Number: FR-B.I. PHARMACEUTICALS,INC./RIDGEFIELD-2012-FF-00544FF

PATIENT
  Sex: Male

DRUGS (3)
  1. ASPIRIN AND DIPYRIDAMOLE [Suspect]
     Dosage: 200MG/25MG
     Route: 048
     Dates: end: 20120309
  2. AVODART [Concomitant]
     Route: 048
  3. TARKA [Suspect]
     Indication: HYPERTENSION
     Route: 048
     Dates: end: 20120309

REACTIONS (2)
  - ANTI-PLATELET ANTIBODY POSITIVE [None]
  - THROMBOCYTOPENIA [None]
